FAERS Safety Report 18430404 (Version 3)
Quarter: 2021Q3

REPORT INFORMATION
  Report Type: Report from Study
  Country: GB (occurrence: GB)
  Receive Date: 20201027
  Receipt Date: 20210720
  Transmission Date: 20211014
  Serious: Yes (Hospitalization)
  Sender: FDA-Public Use
  Company Number: GB-KARYOPHARM THERAPEUTICS, INC.-2020KPT001251

PATIENT
  Age: 73 Year
  Sex: Female

DRUGS (12)
  1. VELCADE [Concomitant]
     Active Substance: BORTEZOMIB
     Dosage: 1 MG/M2
     Dates: start: 20201119
  2. ACYCLOVIR. [Concomitant]
     Active Substance: ACYCLOVIR
     Indication: PRODUCT USED FOR UNKNOWN INDICATION
     Dosage: 400 MG, BID
     Dates: start: 20200924
  3. METOCLOPRAMIDE. [Concomitant]
     Active Substance: METOCLOPRAMIDE
     Indication: NAUSEA
     Dosage: 10 MG, PRN
     Dates: start: 20200924
  4. DEXAMETHASONE. [Concomitant]
     Active Substance: DEXAMETHASONE
     Indication: PLASMA CELL MYELOMA
     Dosage: UNK
  5. ONDANSETRON [Concomitant]
     Active Substance: ONDANSETRON
     Indication: PRODUCT USED FOR UNKNOWN INDICATION
     Dosage: 8 MG, TID
     Dates: start: 20200924
  6. SULFAMETHOXAZOLE AND TRIMETHOPRIM [Concomitant]
     Active Substance: SULFAMETHOXAZOLE\TRIMETHOPRIM
     Indication: PRODUCT USED FOR UNKNOWN INDICATION
     Dosage: 960 MG
     Dates: start: 20200924
  7. SELINEXOR [Suspect]
     Active Substance: SELINEXOR
     Dosage: 80 MG, WEEKLY
     Dates: start: 20201009, end: 20201009
  8. SELINEXOR [Suspect]
     Active Substance: SELINEXOR
     Dosage: 80 MG, 2X/WEEK
     Dates: start: 20201016, end: 20201018
  9. VELCADE [Concomitant]
     Active Substance: BORTEZOMIB
     Dosage: 2.3 MG
     Dates: start: 20201015
  10. VELCADE [Concomitant]
     Active Substance: BORTEZOMIB
     Indication: PLASMA CELL MYELOMA
     Dosage: 2.3 MG, WEEKLY
     Dates: start: 20200924, end: 20201001
  11. SELINEXOR [Suspect]
     Active Substance: SELINEXOR
     Indication: PLASMA CELL MYELOMA
     Dosage: 80 MG, 2X/WEEK
     Route: 048
     Dates: start: 20200924, end: 20200926
  12. SELINEXOR [Suspect]
     Active Substance: SELINEXOR
     Dosage: 40 MG, WEEKLY
     Route: 048
     Dates: start: 20201119

REACTIONS (13)
  - Bone pain [Unknown]
  - Malaise [Unknown]
  - Headache [Unknown]
  - Urinary tract infection [Not Recovered/Not Resolved]
  - Nausea [Unknown]
  - Flatulence [Unknown]
  - Hyponatraemia [Recovered/Resolved]
  - Decreased appetite [Unknown]
  - Pancytopenia [Not Recovered/Not Resolved]
  - Photopsia [Unknown]
  - Dizziness [Unknown]
  - Dyspnoea exertional [Unknown]
  - Lethargy [Unknown]

NARRATIVE: CASE EVENT DATE: 2020
